FAERS Safety Report 6245332-X (Version None)
Quarter: 2009Q2

REPORT INFORMATION
  Report Type: 
  Country: None (occurrence: None)
  Receive Date: 20090625
  Receipt Date: 20090622
  Transmission Date: 20091009
  Serious: Yes (Death, Hospitalization)
  Sender: FDA-Public Use
  Company Number: US-ELI_LILLY_AND_COMPANY-US200906005068

PATIENT
  Age: 65 Year
  Sex: Female

DRUGS (2)
  1. ALIMTA [Suspect]
     Indication: OVARIAN CANCER RECURRENT
     Dosage: 500 MG/M2, UNK
     Route: 042
  2. CARBOPLATIN [Concomitant]
     Indication: OVARIAN CANCER RECURRENT
     Dosage: 5 D/F, UNK
     Route: 042

REACTIONS (2)
  - MYOCARDIAL INFARCTION [None]
  - RESPIRATORY DISTRESS [None]
